FAERS Safety Report 10185523 (Version 1)
Quarter: 2014Q2

REPORT INFORMATION
  Report Type: Report from Study
  Country: JP (occurrence: JP)
  Receive Date: 20140521
  Receipt Date: 20140521
  Transmission Date: 20141212
  Serious: Yes (Other)
  Sender: FDA-Public Use
  Company Number: JP-ROCHE-1400116

PATIENT
  Sex: 0

DRUGS (6)
  1. BEVACIZUMAB [Suspect]
     Indication: COLORECTAL CANCER METASTATIC
     Dosage: ON DAY 1
     Route: 042
  2. CAPECITABINE [Suspect]
     Indication: COLORECTAL CANCER METASTATIC
     Dosage: DAY 1-14 EVERY 3 WEEKS
     Route: 048
  3. OXALIPLATIN [Suspect]
     Indication: COLORECTAL CANCER
     Dosage: ON DAY 1
     Route: 042
  4. 5% GLUCOSE SOLUTION [Concomitant]
     Route: 065
  5. PALONOSETRON [Concomitant]
     Route: 065
  6. DEXAMETHASONE [Concomitant]
     Route: 065

REACTIONS (14)
  - Thrombosis [Unknown]
  - Diarrhoea [Unknown]
  - Ileus [Unknown]
  - Fatigue [Unknown]
  - Cerebral infarction [Unknown]
  - Palmar-plantar erythrodysaesthesia syndrome [Unknown]
  - Pneumonia [Unknown]
  - Fracture [Unknown]
  - Hypertension [Unknown]
  - Ascites [Unknown]
  - Necrotising fasciitis [Unknown]
  - Neutrophil count abnormal [Unknown]
  - Platelet count abnormal [Unknown]
  - Alanine aminotransferase abnormal [Unknown]
